FAERS Safety Report 16142285 (Version 1)
Quarter: 2019Q2

REPORT INFORMATION
  Report Type: Spontaneous
  Country: US (occurrence: US)
  Receive Date: 20190401
  Receipt Date: 20190401
  Transmission Date: 20190711
  Serious: No
  Sender: FDA-Public Use
  Company Number: US-SA-2019SA087507

PATIENT

DRUGS (4)
  1. TOUJEO [Suspect]
     Active Substance: INSULIN GLARGINE
     Dosage: 30 U, UNK
     Route: 065
  2. TRAJENTA [Suspect]
     Active Substance: LINAGLIPTIN
     Dosage: 5 MG, UNK
     Route: 065
  3. TAMSULOSINA [Suspect]
     Active Substance: TAMSULOSIN HYDROCHLORIDE
     Dosage: 4 MG, UNK
     Route: 065
  4. FLUOXETINE [Suspect]
     Active Substance: FLUOXETINE HYDROCHLORIDE
     Dosage: 40 MG, BID
     Route: 065

REACTIONS (1)
  - Drug hypersensitivity [Unknown]
